FAERS Safety Report 17878448 (Version 1)
Quarter: 2020Q2

REPORT INFORMATION
  Report Type: Spontaneous
  Country: US (occurrence: US)
  Receive Date: 20200610
  Receipt Date: 20200610
  Transmission Date: 20200714
  Serious: Yes (Other)
  Sender: FDA-Public Use
  Company Number: US-OCTA-NGAM04220US

PATIENT
  Age: 71 Year
  Sex: Female

DRUGS (1)
  1. PANZYGA [Suspect]
     Active Substance: HUMAN IMMUNOGLOBULIN G
     Indication: IMMUNODEFICIENCY COMMON VARIABLE
     Route: 042
     Dates: start: 20200501, end: 20200501

REACTIONS (1)
  - Retinal artery embolism [Not Recovered/Not Resolved]

NARRATIVE: CASE EVENT DATE: 20200509
